FAERS Safety Report 6708711-X (Version None)
Quarter: 2010Q2

REPORT INFORMATION
  Report Type: 
  Country: None (occurrence: None)
  Receive Date: 20100503
  Receipt Date: 20100422
  Transmission Date: 20101027
  Serious: Yes (Hospitalization)
  Sender: FDA-Public Use
  Company Number: BR-GENENTECH-301063

PATIENT
  Sex: Female
  Weight: 68 kg

DRUGS (7)
  1. RITUXIMAB [Suspect]
     Indication: RHEUMATOID ARTHRITIS
     Dosage: UNK
     Route: 042
  2. RITUXIMAB [Suspect]
     Dosage: 1000 MG/ML, UNK
     Route: 042
     Dates: start: 20091022, end: 20091106
  3. FIXICAL [Concomitant]
     Indication: DRUG USE FOR UNKNOWN INDICATION
     Dosage: 600 MG, QAM
  4. ALENDRONATE SODIUM [Concomitant]
     Indication: DRUG USE FOR UNKNOWN INDICATION
     Dosage: 70 MG, 1/WEEK
  5. TRAMAL [Concomitant]
     Indication: DRUG USE FOR UNKNOWN INDICATION
     Dosage: 50 MG, QAM
  6. OMEPRAZOLE [Concomitant]
     Indication: DRUG USE FOR UNKNOWN INDICATION
     Dosage: 20 MG, BID
  7. IBUPROFEN [Concomitant]
     Indication: DRUG USE FOR UNKNOWN INDICATION
     Dosage: 600 MG, UNK

REACTIONS (3)
  - ANAEMIA [None]
  - HYPERSENSITIVITY [None]
  - SUTURE RELATED COMPLICATION [None]
